FAERS Safety Report 16384950 (Version 2)
Quarter: 2019Q2

REPORT INFORMATION
  Report Type: Report from Study
  Country: US (occurrence: US)
  Receive Date: 20190603
  Receipt Date: 20190613
  Transmission Date: 20190711
  Serious: Yes (Other)
  Sender: FDA-Public Use
  Company Number: US-JNJFOC-20190539332

PATIENT
  Age: 47 Year
  Sex: Female

DRUGS (2)
  1. SPRAVATO [Suspect]
     Active Substance: ESKETAMINE
     Indication: DEPRESSION
     Route: 045
     Dates: start: 20190523
  2. SPRAVATO [Suspect]
     Active Substance: ESKETAMINE
     Indication: DEPRESSION
     Route: 045

REACTIONS (4)
  - General physical health deterioration [Unknown]
  - Accident [Unknown]
  - Speech disorder [Unknown]
  - Road traffic accident [Unknown]

NARRATIVE: CASE EVENT DATE: 20190527
